FAERS Safety Report 20087933 (Version 2)
Quarter: 2021Q4

REPORT INFORMATION
  Report Type: Report from Study
  Country: US (occurrence: US)
  Receive Date: 20211118
  Receipt Date: 20211207
  Transmission Date: 20220303
  Serious: No
  Sender: FDA-Public Use
  Company Number: US-KYOWAKIRIN-2021BKK019181

PATIENT

DRUGS (1)
  1. MOGAMULIZUMAB [Suspect]
     Active Substance: MOGAMULIZUMAB
     Indication: Cutaneous T-cell lymphoma
     Dosage: 6 VIALS Q2W AT INDUCTION AND Q2W AT MAINTENANCE
     Route: 065
     Dates: start: 202002

REACTIONS (2)
  - Therapy naive [Unknown]
  - Off label use [Unknown]

NARRATIVE: CASE EVENT DATE: 20200201
